FAERS Safety Report 23695284 (Version 1)
Quarter: 2024Q2

REPORT INFORMATION
  Report Type: Spontaneous
  Country: TR (occurrence: TR)
  Receive Date: 20240402
  Receipt Date: 20240402
  Transmission Date: 20240716
  Serious: Yes (Hospitalization, Other)
  Sender: FDA-Public Use
  Company Number: TR-MLMSERVICE-20240318-4890329-1

PATIENT
  Age: 50 Year
  Sex: Female

DRUGS (1)
  1. DOCETAXEL [Suspect]
     Active Substance: DOCETAXEL\DOCETAXEL ANHYDROUS
     Indication: Invasive ductal breast carcinoma
     Dosage: 100MG/M2 EVERY THREE WEEKS

REACTIONS (2)
  - Drug-induced liver injury [Recovered/Resolved]
  - Respiratory distress [Recovered/Resolved]
